FAERS Safety Report 9799211 (Version 2)
Quarter: 2014Q1

REPORT INFORMATION
  Report Type: Spontaneous
  Country: US (occurrence: US)
  Receive Date: 20140106
  Receipt Date: 20140106
  Transmission Date: 20141002
  Serious: No
  Sender: FDA-Public Use
  Company Number: US-GILEAD-2010-0033988

PATIENT
  Age: 63 Year
  Sex: Female
  Weight: 98.88 kg

DRUGS (8)
  1. LETAIRIS [Suspect]
     Indication: PULMONARY ARTERIAL HYPERTENSION
     Route: 048
     Dates: start: 20100716
  2. ATENOLOL [Concomitant]
  3. SIMVASTATIN [Concomitant]
  4. COZAAR [Concomitant]
  5. DIOVAN [Concomitant]
  6. ISOSORBIDE [Concomitant]
  7. LEVOTHYROXINE [Concomitant]
  8. FLEXERIL                           /00428402 [Concomitant]

REACTIONS (1)
  - Oedema [Recovered/Resolved]
